APPROVED DRUG PRODUCT: LEVOTHYROXINE SODIUM
Active Ingredient: LEVOTHYROXINE SODIUM
Strength: 0.175MG **See current Annual Edition, 1.8 Description of Special Situations, Levothyroxine Sodium
Dosage Form/Route: TABLET;ORAL
Application: A209713 | Product #010 | TE Code: AB1,AB2,AB3
Applicant: LUPIN INC
Approved: Jan 18, 2019 | RLD: No | RS: No | Type: RX